FAERS Safety Report 21450484 (Version 1)
Quarter: 2022Q4

REPORT INFORMATION
  Report Type: Spontaneous
  Country: US (occurrence: None)
  Receive Date: 20221012
  Receipt Date: 20221012
  Transmission Date: 20230113
  Serious: No
  Sender: FDA-Public Use
  Company Number: None

PATIENT
  Age: 50 Year
  Sex: Male

DRUGS (4)
  1. HUMIRA [Suspect]
     Active Substance: ADALIMUMAB
     Indication: Behcet^s syndrome
     Dosage: OTHER FREQUENCY : EVERY 10 DAYS;?
     Route: 058
     Dates: start: 202205
  2. HUMIRA [Suspect]
     Active Substance: ADALIMUMAB
     Indication: Iridocyclitis
  3. OTEZLA [Suspect]
     Active Substance: APREMILAST
     Indication: Behcet^s syndrome
     Dosage: OTHER QUANTITY : TAKE 1 TABLET;?FREQUENCY : TWICE A DAY;?
     Route: 048
     Dates: start: 202112
  4. OTEZLA [Suspect]
     Active Substance: APREMILAST
     Indication: Iridocyclitis

REACTIONS (2)
  - Cough [None]
  - Therapy interrupted [None]
